FAERS Safety Report 18958564 (Version 1)
Quarter: 2021Q1

REPORT INFORMATION
  Report Type: Spontaneous
  Country: US (occurrence: US)
  Receive Date: 20210302
  Receipt Date: 20210302
  Transmission Date: 20210420
  Serious: Yes (Death, Hospitalization, Other)
  Sender: FDA-Public Use
  Company Number: US-AMGEN-USASP2021030947

PATIENT

DRUGS (7)
  1. VINCRISTINE [Concomitant]
     Active Substance: VINCRISTINE
     Indication: NON-HODGKIN^S LYMPHOMA
     Dosage: 0.4 MILLIGRAM/SQ. METER (DAYS 1 TO 4 CONTINUOUS INFUSION, MAX 2 MG/DOSE)
     Route: 042
  2. DOXORUBICIN [Concomitant]
     Active Substance: DOXORUBICIN
     Indication: NON-HODGKIN^S LYMPHOMA
     Dosage: 10 MILLIGRAM/SQ. METER (DAYS 1 TO 4 CONTINUOUS INFUSION)
     Route: 042
  3. CYCLOPHOSPHAMIDE. [Concomitant]
     Active Substance: CYCLOPHOSPHAMIDE
     Indication: NON-HODGKIN^S LYMPHOMA
     Dosage: 750 MILLIGRAM/SQ. METER, DAY 5 INFUSED OVER 30 MIN
     Route: 042
  4. PREDNISONE. [Concomitant]
     Active Substance: PREDNISONE
     Indication: NON-HODGKIN^S LYMPHOMA
     Dosage: 60 MILLIGRAM/SQ. METER, BID (DAYS 1?5 (10 TOTAL DOSES) ORAL
     Route: 048
  5. RITUXIMAB. [Concomitant]
     Active Substance: RITUXIMAB
     Indication: NON-HODGKIN^S LYMPHOMA
     Dosage: 375 MILLIGRAM/SQ. METER (DAY 1 IF CD20 POSITIVE MARKER PRESENT)
     Route: 042
  6. FILGRASTIM [Suspect]
     Active Substance: FILGRASTIM
     Indication: PROPHYLAXIS
     Dosage: 300?400 MCG DAILY (STARTING ON DAY 6 AND CONTINUED UNTIL ANC MORE THAN 5000 CELLS/MM3)
     Route: 058
  7. ETOPOSIDE. [Concomitant]
     Active Substance: ETOPOSIDE
     Indication: NON-HODGKIN^S LYMPHOMA
     Dosage: 50 MILLIGRAM/SQ. METER ( (DAYS 1 TO 4 CONTINUOUS INFUSION)
     Route: 042

REACTIONS (5)
  - Febrile neutropenia [Unknown]
  - Infection [Unknown]
  - Non-Hodgkin^s lymphoma recurrent [Unknown]
  - Death [Fatal]
  - Bone pain [Unknown]
